FAERS Safety Report 4797856-X (Version None)
Quarter: 2005Q3

REPORT INFORMATION
  Report Type: 
  Country: None (occurrence: None)
  Receive Date: 20050929
  Receipt Date: 20050720
  Transmission Date: 20060218
  Serious: No
  Sender: FDA-Public Use
  Company Number: 05P-163-0297927-00

PATIENT
  Sex: Female

DRUGS (1)
  1. HUMIRA [Suspect]
     Dosage: 40 MG, SUBCUTANEOUS
     Route: 058
     Dates: start: 20041201

REACTIONS (6)
  - ALOPECIA [None]
  - DRY SKIN [None]
  - HERPES ZOSTER [None]
  - INJECTION SITE RASH [None]
  - RASH [None]
  - RHEUMATOID NODULE [None]
